FAERS Safety Report 18847234 (Version 1)
Quarter: 2021Q1

REPORT INFORMATION
  Report Type: Report from Study
  Country: US (occurrence: US)
  Receive Date: 20210203
  Receipt Date: 20210203
  Transmission Date: 20210419
  Serious: No
  Sender: FDA-Public Use
  Company Number: US-EXELIXIS-CABO-20033758

PATIENT
  Age: 70 Year
  Sex: Male

DRUGS (3)
  1. CABOMETYX [Suspect]
     Active Substance: CABOZANTINIB S-MALATE
     Indication: HEPATOCELLULAR CARCINOMA
     Dosage: 60 MG, QD
     Dates: start: 20200921
  2. CABOMETYX [Suspect]
     Active Substance: CABOZANTINIB S-MALATE
     Dosage: 60 MG, QD (3 DAYS ON 1 DAY OFF)
     Dates: start: 20201005
  3. CABOMETYX [Suspect]
     Active Substance: CABOZANTINIB S-MALATE
     Dosage: 60 MG, QD

REACTIONS (7)
  - Decreased appetite [Recovered/Resolved]
  - Eye injury [Unknown]
  - Vomiting [Not Recovered/Not Resolved]
  - Diarrhoea [Unknown]
  - Fall [Unknown]
  - Inappropriate schedule of product administration [Unknown]
  - Nausea [Not Recovered/Not Resolved]

NARRATIVE: CASE EVENT DATE: 20201005
